FAERS Safety Report 4551384-5 (Version None)
Quarter: 2005Q1

REPORT INFORMATION
  Report Type: 
  Country: None (occurrence: None)
  Receive Date: 20050107
  Receipt Date: 20040209
  Transmission Date: 20050727
  Serious: Yes (Hospitalization)
  Sender: FDA-Public Use
  Company Number: 2004AP00019

PATIENT
  Age: 51 Year
  Sex: Female

DRUGS (5)
  1. IRESSA [Suspect]
     Indication: NON-SMALL CELL LUNG CANCER
     Dosage: 250 MG DAILY PO
     Route: 048
     Dates: start: 20031203, end: 20031231
  2. IRESSA [Suspect]
     Indication: NON-SMALL CELL LUNG CANCER
     Dosage: 250 MG DAILY PO
     Route: 048
     Dates: start: 20040112
  3. EPILIM [Suspect]
     Indication: EPILEPSY
     Dates: start: 20030610, end: 20031231
  4. LOSEC [Concomitant]
  5. MEGESTROL ACETATE [Concomitant]

REACTIONS (4)
  - GALLBLADDER DISORDER [None]
  - HEPATITIS [None]
  - PLATELET COUNT DECREASED [None]
  - PLEURAL EFFUSION [None]
